FAERS Safety Report 7282221-6 (Version None)
Quarter: 2011Q1

REPORT INFORMATION
  Report Type: 
  Country: None (occurrence: None)
  Receive Date: 20110209
  Receipt Date: 20110126
  Transmission Date: 20110831
  Serious: Yes (Hospitalization)
  Sender: FDA-Public Use
  Company Number: 2010BI004145

PATIENT
  Age: 38 Year
  Sex: Male
  Weight: 74 kg

DRUGS (1)
  1. TYSABRI [Suspect]
     Indication: MULTIPLE SCLEROSIS
     Route: 042
     Dates: start: 20091228

REACTIONS (2)
  - MULTIPLE SCLEROSIS RELAPSE [None]
  - DYSARTHRIA [None]
